FAERS Safety Report 18926480 (Version 1)
Quarter: 2021Q1

REPORT INFORMATION
  Report Type: Report from Study
  Country: GB (occurrence: GB)
  Receive Date: 20210223
  Receipt Date: 20210223
  Transmission Date: 20210420
  Serious: Yes (Death)
  Sender: FDA-Public Use
  Company Number: GB-PFIZER INC-2021178930

PATIENT

DRUGS (7)
  1. CISPLATIN. [Suspect]
     Active Substance: CISPLATIN
     Indication: BLADDER CANCER
     Dosage: 100 MG/M2, CYCLIC (DAY 2, BEFORE HYDRATION) EVERY 21 DAYS FOR THREE CYCLES
     Route: 042
  2. METHOTREXATE SODIUM. [Suspect]
     Active Substance: METHOTREXATE SODIUM
     Dosage: 30 MG/M2, DAY 8 (CYCLIC EVERY 21 DAYS FOR THREE CYCLES
     Route: 040
  3. CALCIUM FOLINATE [Suspect]
     Active Substance: LEUCOVORIN CALCIUM
     Dosage: 15 MG, CYCLIC (EVERY 6 H) STARTED 24 H AFTER METHOTREXATE ON DAY 8.) 21 DAYS 3 CYCLES
     Route: 048
  4. VINBLASTINE [Suspect]
     Active Substance: VINBLASTINE
     Indication: BLADDER CANCER
     Dosage: 4 MG/M2, CYCLIC DAY 1, (REPEATED EVERY 21 DAYS FOR THREE CYCLES)
     Route: 040
  5. VINBLASTINE [Suspect]
     Active Substance: VINBLASTINE
     Dosage: 4 MG/M2, CYCLIC DAY 8, (REPEATED EVERY 21 DAYS FOR THREE CYCLES)
     Route: 040
  6. CALCIUM FOLINATE [Suspect]
     Active Substance: LEUCOVORIN CALCIUM
     Indication: BLADDER CANCER
     Dosage: 15 MG, CYCLIC (EVERY 6 H) STARTED 24 H AFTER METHOTREXATE ON DAY 1) 21 DAYS 3 CYCLES
  7. METHOTREXATE SODIUM. [Suspect]
     Active Substance: METHOTREXATE SODIUM
     Indication: BLADDER CANCER
     Dosage: 30 MG/M2, CYCLIC ON DAY 1 (EVERY 21 DAYS FOR THREE CYCLES)
     Route: 040

REACTIONS (1)
  - Death [Fatal]
